FAERS Safety Report 14996757 (Version 2)
Quarter: 2018Q3

REPORT INFORMATION
  Report Type: Spontaneous
  Country: US (occurrence: US)
  Receive Date: 20180611
  Receipt Date: 20180711
  Transmission Date: 20181010
  Serious: No
  Sender: FDA-Public Use
  Company Number: US-PFIZER INC-2018231337

PATIENT
  Age: 6 Year
  Sex: Male
  Weight: 16.78 kg

DRUGS (2)
  1. QUILLIVANT XR [Suspect]
     Active Substance: METHYLPHENIDATE HYDROCHLORIDE
     Indication: DISTURBANCE IN ATTENTION
     Dosage: 4 ML, DAILY
     Dates: start: 201712
  2. QUILLIVANT XR [Suspect]
     Active Substance: METHYLPHENIDATE HYDROCHLORIDE
     Dosage: 3 ML, DAILY

REACTIONS (2)
  - Abnormal behaviour [Unknown]
  - Intentional underdose [Unknown]
